FAERS Safety Report 11273105 (Version 1)
Quarter: 2015Q3

REPORT INFORMATION
  Report Type: Spontaneous
  Country: US (occurrence: None)
  Receive Date: 20150714
  Receipt Date: 20150714
  Transmission Date: 20151125
  Serious: Yes (Disabling, Other)
  Sender: FDA-Public Use
  Company Number: None

PATIENT
  Age: 30 Year
  Sex: Female
  Weight: 86.18 kg

DRUGS (3)
  1. WOMEN^S MULTIVITAMIN [Concomitant]
  2. IMPLANON [Suspect]
     Active Substance: ETONOGESTREL
     Indication: CONTRACEPTION
     Dosage: ROD   GIVEN INTO/UNDER THE SKIN?LESS THAN 1 YEAR
     Route: 058
  3. IMPLANON [Suspect]
     Active Substance: ETONOGESTREL
     Indication: HORMONE THERAPY
     Dosage: ROD   GIVEN INTO/UNDER THE SKIN?LESS THAN 1 YEAR
     Route: 058

REACTIONS (12)
  - Weight increased [None]
  - Fatigue [None]
  - Arthralgia [None]
  - Acne [None]
  - Joint swelling [None]
  - Amenorrhoea [None]
  - Depression [None]
  - Headache [None]
  - Sinusitis [None]
  - Malaise [None]
  - Neck mass [None]
  - Pain [None]

NARRATIVE: CASE EVENT DATE: 20130701
